FAERS Safety Report 7030763-0 (Version None)
Quarter: 2010Q4

REPORT INFORMATION
  Report Type: 
  Country: None (occurrence: None)
  Receive Date: 20101006
  Receipt Date: 20100930
  Transmission Date: 20110411
  Serious: Yes (Other)
  Sender: FDA-Public Use
  Company Number: US-PFIZER INC-2010105218

PATIENT
  Sex: Female

DRUGS (5)
  1. VFEND [Suspect]
     Indication: ASPERGILLOSIS
     Dosage: 350 MG, 2X/DAY
     Route: 042
     Dates: start: 20100812, end: 20100813
  2. VFEND [Suspect]
     Dosage: 240 MG, 2X/DAY
     Route: 042
     Dates: start: 20100813, end: 20100818
  3. VFEND [Suspect]
     Dosage: 200 MG, 2X/DAY
     Route: 048
     Dates: start: 20100818, end: 20100821
  4. SOLU-MEDROL [Concomitant]
     Dosage: 40 MG, 3X/DAY
     Dates: start: 20100809, end: 20100812
  5. PREDNISONE [Concomitant]
     Dosage: 20 MG, 2X/DAY
     Route: 048

REACTIONS (1)
  - HYPOGLYCAEMIA [None]
